FAERS Safety Report 4356362-7 (Version None)
Quarter: 2004Q2

REPORT INFORMATION
  Report Type: 
  Country: None (occurrence: None)
  Receive Date: 20040511
  Receipt Date: 20040511
  Transmission Date: 20050107
  Serious: Yes (Hospitalization)
  Sender: FDA-Public Use
  Company Number: None

PATIENT
  Age: 2 Month
  Sex: Male
  Weight: 4.2 kg

DRUGS (12)
  1. ERYTHROMYCIN ESTOLATE [Suspect]
     Indication: GASTROOESOPHAGEAL REFLUX DISEASE
     Dosage: 10 MG EVERY 6 HO ORAL
     Route: 048
     Dates: start: 20040327, end: 20040328
  2. ERYTHROMYCIN ESTOLATE [Suspect]
     Indication: GASTROOESOPHAGEAL REFLUX DISEASE
     Dosage: 10 MG EVERY 6 HO ORAL
     Route: 048
     Dates: start: 20040416, end: 20040430
  3. ACETAMINOPHEN [Concomitant]
  4. ALBUTEROL [Concomitant]
  5. BUDESONIDE [Concomitant]
  6. CHLOROTHIAZIDE [Concomitant]
  7. DIAZEPAM [Concomitant]
  8. EPOGEN [Concomitant]
  9. FERROUS SULFATE TAB [Concomitant]
  10. LANSOPRAZOLE [Concomitant]
  11. METOCLOPRAMIDE [Concomitant]
  12. SPIRONOLACTONE [Concomitant]

REACTIONS (1)
  - ACQUIRED PYLORIC STENOSIS [None]
